FAERS Safety Report 20136322 (Version 2)
Quarter: 2021Q4

REPORT INFORMATION
  Report Type: Spontaneous
  Country: JP (occurrence: JP)
  Receive Date: 20211201
  Receipt Date: 20211224
  Transmission Date: 20220304
  Serious: Yes (Death, Other)
  Sender: FDA-Public Use
  Company Number: JP-GILEAD-2021-0558450

PATIENT
  Age: 71 Year
  Sex: Male

DRUGS (1)
  1. VEKLURY [Suspect]
     Active Substance: REMDESIVIR
     Indication: COVID-19
     Dosage: UNK
     Route: 065

REACTIONS (6)
  - Haemorrhagic cerebral infarction [Fatal]
  - Pneumonia [Fatal]
  - COVID-19 [Fatal]
  - Fibrin degradation products increased [Unknown]
  - Haematuria [Unknown]
  - Anaemia [Unknown]
